FAERS Safety Report 22017383 (Version 2)
Quarter: 2023Q1

REPORT INFORMATION
  Report Type: Spontaneous
  Country: PT (occurrence: PT)
  Receive Date: 20230221
  Receipt Date: 20230227
  Transmission Date: 20230418
  Serious: Yes (Death, Other)
  Sender: FDA-Public Use
  Company Number: PT-GILEAD-2022-0576258

PATIENT
  Age: 30 Year
  Sex: Male

DRUGS (1)
  1. YESCARTA [Suspect]
     Active Substance: AXICABTAGENE CILOLEUCEL
     Indication: Primary mediastinal large B-cell lymphoma
     Dosage: UNK
     Route: 042
     Dates: start: 20220315, end: 20220315

REACTIONS (2)
  - Disease progression [Fatal]
  - Cytokine release syndrome [Recovered/Resolved]

NARRATIVE: CASE EVENT DATE: 20220301
